FAERS Safety Report 5760802-6 (Version None)
Quarter: 2008Q2

REPORT INFORMATION
  Report Type: 
  Country: None (occurrence: None)
  Receive Date: 20080606
  Receipt Date: 20080528
  Transmission Date: 20081010
  Serious: Yes (Disabling)
  Sender: FDA-Public Use
  Company Number: CL-WYE-H04294608

PATIENT
  Age: 46 Year
  Sex: Female
  Weight: 54 kg

DRUGS (1)
  1. EFFEXOR [Suspect]
     Route: 048
     Dates: start: 20080101, end: 20080301

REACTIONS (1)
  - ILEUS PARALYTIC [None]
